FAERS Safety Report 7244180-1 (Version None)
Quarter: 2011Q1

REPORT INFORMATION
  Report Type: 
  Country: None (occurrence: None)
  Receive Date: 20110125
  Receipt Date: 20110119
  Transmission Date: 20110831
  Serious: Yes (Death)
  Sender: FDA-Public Use
  Company Number: DE-CELGENEUS-062-20785-11010972

PATIENT
  Age: 74 Year
  Sex: Male
  Weight: 79 kg

DRUGS (2)
  1. HYDROXYUREA [Concomitant]
     Route: 065
  2. THALIDOMIDE [Suspect]
     Route: 048

REACTIONS (2)
  - MYELOFIBROSIS [None]
  - ANAEMIA [None]
